FAERS Safety Report 9142547 (Version 1)
Quarter: 2013Q1

REPORT INFORMATION
  Report Type: Spontaneous
  Country: US (occurrence: US)
  Receive Date: 20130306
  Receipt Date: 20130306
  Transmission Date: 20140127
  Serious: Yes (Other)
  Sender: FDA-Public Use
  Company Number: US-AMGEN-USASP2013012432

PATIENT
  Age: 57 Year
  Sex: Female

DRUGS (6)
  1. PROLIA [Suspect]
     Indication: OSTEOPOROSIS POSTMENOPAUSAL
     Dosage: UNK
     Dates: start: 201201
  2. CALCIUM WITH VITAMIN D             /00944201/ [Concomitant]
  3. SYNTHROID [Concomitant]
     Dosage: 0.1 MG, UNK
  4. VIVELLE                            /00045401/ [Concomitant]
     Dosage: 0.1 MG, QD
  5. MULTIVITAMIN                       /00097801/ [Concomitant]
  6. MAGNESIUM [Concomitant]
     Dosage: UNK

REACTIONS (12)
  - Meniscus injury [Unknown]
  - Muscle spasms [Unknown]
  - Sleep disorder [Unknown]
  - Foot deformity [Unknown]
  - Gait disturbance [Unknown]
  - Feeling hot [Unknown]
  - Tenderness [Unknown]
  - Tendon disorder [Unknown]
  - Stress fracture [Unknown]
  - Eyelid oedema [Unknown]
  - Paraesthesia [Recovered/Resolved]
  - Pain in extremity [Recovered/Resolved]
